FAERS Safety Report 8113291-0 (Version None)
Quarter: 2012Q1

REPORT INFORMATION
  Report Type: 
  Country: None (occurrence: None)
  Receive Date: 20120203
  Receipt Date: 20120126
  Transmission Date: 20120608
  Serious: Yes (Hospitalization, Other)
  Sender: FDA-Public Use
  Company Number: PHHY2011JP108310

PATIENT
  Age: 70 Year
  Sex: Male
  Weight: 54 kg

DRUGS (11)
  1. ZOMETA [Suspect]
     Indication: METASTASES TO BONE
     Dosage: 4 MG, PER ADMINISTRATION
     Route: 041
     Dates: end: 20111114
  2. PANTOSIN [Concomitant]
     Route: 048
  3. DECADRON [Concomitant]
     Route: 048
  4. SENNOSIDE [Concomitant]
     Route: 048
  5. LANSOPRAZOLE [Concomitant]
  6. ZYPREXA [Concomitant]
     Route: 048
  7. STEROIDS [Concomitant]
  8. TALION [Concomitant]
     Route: 048
  9. MAGNESIUM OXIDE [Concomitant]
     Route: 048
  10. MOBIC [Concomitant]
  11. OXYCONTIN [Concomitant]
     Route: 048

REACTIONS (13)
  - PAIN IN JAW [None]
  - PYREXIA [None]
  - GINGIVAL INFECTION [None]
  - FISTULA [None]
  - ABSCESS JAW [None]
  - LYMPHADENOPATHY [None]
  - OSTEONECROSIS OF JAW [None]
  - OSTEOMYELITIS [None]
  - ERYTHEMA [None]
  - EXPOSED BONE IN JAW [None]
  - SWELLING [None]
  - PURULENT DISCHARGE [None]
  - LYMPH NODE PAIN [None]
